FAERS Safety Report 17424138 (Version 1)
Quarter: 2020Q1

REPORT INFORMATION
  Report Type: Spontaneous
  Country: NL (occurrence: NL)
  Receive Date: 20200217
  Receipt Date: 20200217
  Transmission Date: 20200409
  Serious: Yes (Other)
  Sender: FDA-Public Use
  Company Number: NL-TEVA-2020-NL-1186646

PATIENT
  Age: 62 Year
  Sex: Female
  Weight: 80 kg

DRUGS (1)
  1. HYDROCORTISONE. [Suspect]
     Active Substance: HYDROCORTISONE
     Indication: ADRENAL INSUFFICIENCY
     Dosage: TABLET 10 MG, 3-4 D, 1 OF 0.5. 1 DOSAGE FORMS
     Dates: start: 202001

REACTIONS (5)
  - Product complaint [Unknown]
  - Endocrine disorder [Recovering/Resolving]
  - Nausea [Unknown]
  - Palpitations [Unknown]
  - Malaise [Unknown]

NARRATIVE: CASE EVENT DATE: 20200101
